FAERS Safety Report 15576814 (Version 1)
Quarter: 2018Q4

REPORT INFORMATION
  Report Type: Spontaneous
  Country: GB (occurrence: GB)
  Receive Date: 20181101
  Receipt Date: 20181101
  Transmission Date: 20190205
  Serious: Yes (Hospitalization, Other)
  Sender: FDA-Public Use
  Company Number: GB-GLAXOSMITHKLINE-GB2018062855

PATIENT

DRUGS (9)
  1. DICLOFENAC POTASSIUM. [Suspect]
     Active Substance: DICLOFENAC POTASSIUM
     Indication: PRODUCT USED FOR UNKNOWN INDICATION
     Dosage: 150 MG, QD
     Route: 065
  2. AMITRIPTYLINE [Suspect]
     Active Substance: AMITRIPTYLINE
     Dosage: 10 MG, UNK
     Route: 065
  3. SALBUTAMOL [Concomitant]
     Active Substance: ALBUTEROL
     Indication: PRODUCT USED FOR UNKNOWN INDICATION
     Dosage: 100MICROGRAMS/DOSE .ONE OR TWO PUFFS TO BE INHALED FOUR TIMES A DAY WHEN REQUIRED. ; AS NECESSAR...
     Route: 055
  4. AMITRIPTYLINE [Suspect]
     Active Substance: AMITRIPTYLINE
     Indication: FACIAL NEURALGIA
     Dosage: 20 MG, UNK
     Route: 065
  5. RELVAR ELLIPTA [Concomitant]
     Active Substance: FLUTICASONE FUROATE\VILANTEROL TRIFENATATE
     Indication: PRODUCT USED FOR UNKNOWN INDICATION
     Dosage: 92MICROGRAMS/DOSE/22MICROGRAMS/DOSE. ; AS NECESSARY
     Route: 055
  6. RANITIDINE. [Concomitant]
     Active Substance: RANITIDINE
     Indication: PRODUCT USED FOR UNKNOWN INDICATION
     Dosage: ONE TO BE TAKEN AT NIGHT ; AS NECESSARY
     Route: 065
  7. CETIRIZINE [Concomitant]
     Active Substance: CETIRIZINE HYDROCHLORIDE
     Indication: SEASONAL ALLERGY
     Dosage: EACH DAY. NOT TAKING NOW. ; AS NECESSARY
     Route: 065
  8. ACICLOVIR [Concomitant]
     Active Substance: ACYCLOVIR
     Indication: ECZEMA HERPETICUM
     Dosage: 800 MG, QD
     Route: 065
  9. CODEINE [Concomitant]
     Active Substance: CODEINE
     Indication: NEURALGIA
     Dosage: ONE OR TWO TO BE TAKEN EVERY FOUR HOURS WHEN NECESSARY. MAXIMUM 8 IN 24 HOURS ; AS NECESSARY
     Route: 065

REACTIONS (1)
  - Rectal haemorrhage [Unknown]
